FAERS Safety Report 4960783-9 (Version None)
Quarter: 2006Q2

REPORT INFORMATION
  Report Type: 
  Country: None (occurrence: None)
  Receive Date: 20060403
  Receipt Date: 20060321
  Transmission Date: 20061013
  Serious: Yes (Hospitalization)
  Sender: FDA-Public Use
  Company Number: 2006GB00488

PATIENT
  Age: 24 Year
  Sex: Male
  Weight: 82 kg

DRUGS (3)
  1. OMEPRAZOLE [Suspect]
     Indication: GASTRITIS
     Route: 048
     Dates: start: 20051108, end: 20051230
  2. OMEPRAZOLE [Interacting]
     Indication: HAEMATEMESIS
     Route: 048
     Dates: start: 20051108, end: 20051230
  3. OLANZAPINE [Interacting]
     Indication: SCHIZOPHRENIA
     Route: 048
     Dates: start: 20040101

REACTIONS (3)
  - ANXIETY [None]
  - DRUG INTERACTION [None]
  - PARANOIA [None]
